FAERS Safety Report 15107322 (Version 2)
Quarter: 2019Q1

REPORT INFORMATION
  Report Type: Spontaneous
  Country: US (occurrence: US)
  Receive Date: 20180704
  Receipt Date: 20190125
  Transmission Date: 20190417
  Serious: No
  Sender: FDA-Public Use
  Company Number: US-GLAXOSMITHKLINE-US2018GSK113859

PATIENT
  Sex: Female

DRUGS (2)
  1. BENLYSTA [Suspect]
     Active Substance: BELIMUMAB
     Indication: SYSTEMIC LUPUS ERYTHEMATOSUS
     Dosage: UNK
     Route: 058
     Dates: start: 201801, end: 201804
  2. BENLYSTA [Suspect]
     Active Substance: BELIMUMAB
     Indication: SYSTEMIC LUPUS ERYTHEMATOSUS
     Dosage: UNK
     Route: 042
     Dates: start: 2017

REACTIONS (7)
  - Adverse reaction [Unknown]
  - Lethargy [Recovered/Resolved]
  - Malaise [Unknown]
  - Underdose [Unknown]
  - Swelling [Recovered/Resolved]
  - Inappropriate schedule of product administration [Unknown]
  - Neuralgia [Recovered/Resolved]
